FAERS Safety Report 7775724-9 (Version None)
Quarter: 2011Q4

REPORT INFORMATION
  Report Type: 
  Country: None (occurrence: None)
  Receive Date: 20110923
  Receipt Date: 20110915
  Transmission Date: 20120403
  Serious: Yes (Other)
  Sender: FDA-Public Use
  Company Number: JP-GLAXOSMITHKLINE-B0748746A

PATIENT
  Age: 53 Year
  Sex: Male

DRUGS (4)
  1. HEPSERA [Concomitant]
     Route: 048
  2. LAMIVUDINE (EPIVIR HBV) [Suspect]
     Indication: PRODUCT USED FOR UNKNOWN INDICATION
     Route: 048
  3. URSO 250 [Concomitant]
     Route: 048
  4. GLYCYRON [Concomitant]
     Route: 048

REACTIONS (4)
  - PHARYNGITIS [None]
  - HEADACHE [None]
  - MALAISE [None]
  - DEAFNESS [None]
